FAERS Safety Report 24765058 (Version 1)
Quarter: 2024Q4

REPORT INFORMATION
  Report Type: Spontaneous
  Country: US (occurrence: US)
  Receive Date: 20241223
  Receipt Date: 20241223
  Transmission Date: 20250114
  Serious: No
  Sender: NOVARTIS
  Company Number: US-002147023-NVSC2024US241548

PATIENT
  Age: 52 Year
  Sex: Female
  Weight: 122 kg

DRUGS (1)
  1. KISQALI [Suspect]
     Active Substance: RIBOCICLIB
     Indication: Breast cancer
     Dosage: 600 MG, QD (FOR 21 DAYS, THEN 7 DAYS OFF)
     Route: 048
     Dates: start: 20240223

REACTIONS (3)
  - Spinal pain [Unknown]
  - Back pain [Unknown]
  - Expired product administered [Unknown]

NARRATIVE: CASE EVENT DATE: 20241122
